FAERS Safety Report 17442135 (Version 2)
Quarter: 2020Q1

REPORT INFORMATION
  Report Type: Report from Study
  Country: CO (occurrence: CO)
  Receive Date: 20200220
  Receipt Date: 20200324
  Transmission Date: 20200409
  Serious: Yes (Other)
  Sender: FDA-Public Use
  Company Number: CO-JNJFOC-20191202138

PATIENT
  Age: 74 Year
  Sex: Female
  Weight: 56 kg

DRUGS (4)
  1. CALCIUM                            /00060701/ [Concomitant]
     Active Substance: CALCIUM
     Route: 065
  2. METHOTREXATE. [Concomitant]
     Active Substance: METHOTREXATE
     Indication: RHEUMATOID ARTHRITIS
     Route: 048
  3. SIMPONI [Suspect]
     Active Substance: GOLIMUMAB
     Indication: RHEUMATOID ARTHRITIS
     Route: 058
     Dates: start: 20160311, end: 20190919
  4. SIMPONI [Suspect]
     Active Substance: GOLIMUMAB
     Route: 058
     Dates: start: 20191211

REACTIONS (10)
  - Chondropathy [Recovering/Resolving]
  - Rheumatoid arthritis [Recovered/Resolved]
  - Contusion [Not Recovered/Not Resolved]
  - Road traffic accident [Unknown]
  - Tibia fracture [Unknown]
  - Product dose omission [Unknown]
  - Bacterial infection [Unknown]
  - Fibula fracture [Unknown]
  - Fall [Unknown]
  - Wound [Unknown]

NARRATIVE: CASE EVENT DATE: 2017
